FAERS Safety Report 5496905-3 (Version None)
Quarter: 2007Q4

REPORT INFORMATION
  Report Type: 
  Country: None (occurrence: None)
  Receive Date: 20071023
  Receipt Date: 20071018
  Transmission Date: 20080405
  Serious: Yes (Death, Other)
  Sender: FDA-Public Use
  Company Number: 2007-03471

PATIENT
  Age: 76 Year
  Sex: Male
  Weight: 49 kg

DRUGS (10)
  1. VELCADE [Suspect]
     Indication: MULTIPLE MYELOMA
     Dosage: 2.00 MG, INTRAVENOUS
     Route: 042
     Dates: start: 20070921, end: 20070928
  2. DEXAMETHASONE 0.5MG TAB [Concomitant]
  3. ALDACTONE [Concomitant]
  4. ALLOPURINOL [Concomitant]
  5. NEO-LOTAN (LOSARTAN POTASSIUM) [Concomitant]
  6. LASIX [Concomitant]
  7. DIFLUCAN [Concomitant]
  8. SLOW-K [Concomitant]
  9. ALBUMIN TANNATE (ALBUMIN TANNATE) [Concomitant]
  10. BIOFERMIN R (STREPTOCOCCUS FAECALIS) [Concomitant]

REACTIONS (8)
  - DRUG INEFFECTIVE [None]
  - HEART RATE DECREASED [None]
  - HYPOVENTILATION [None]
  - PLATELET COUNT DECREASED [None]
  - PNEUMONIA BACTERIAL [None]
  - RENAL FAILURE [None]
  - RESPIRATORY FAILURE [None]
  - SEPTIC SHOCK [None]
